FAERS Safety Report 16443124 (Version 2)
Quarter: 2019Q3

REPORT INFORMATION
  Report Type: Report from Study
  Country: US (occurrence: US)
  Receive Date: 20190617
  Receipt Date: 20190708
  Transmission Date: 20191004
  Serious: Yes (Hospitalization, Other)
  Sender: FDA-Public Use
  Company Number: US-BRISTOL-MYERS SQUIBB COMPANY-BMS-2019-035778

PATIENT
  Age: 20 Year
  Sex: Female

DRUGS (2)
  1. BLINDED PLACEBO [Suspect]
     Active Substance: INVESTIGATIONAL PRODUCT
     Indication: GRAFT VERSUS HOST DISEASE
     Dosage: 500 MILLIGRAM, OVER 1 HOUR
     Route: 042
     Dates: start: 20160317
  2. BLINDED ABATACEPT [Suspect]
     Active Substance: ABATACEPT
     Indication: GRAFT VERSUS HOST DISEASE
     Dosage: 500 MILLIGRAM, OVER 1 HOUR
     Route: 042
     Dates: start: 20160317

REACTIONS (6)
  - Thrombocytopenia [Unknown]
  - Pulmonary oedema [Unknown]
  - Urinary tract infection [Recovered/Resolved with Sequelae]
  - Anaemia [Unknown]
  - Electrocardiogram ST segment depression [Unknown]
  - Graft versus host disease [Recovered/Resolved]

NARRATIVE: CASE EVENT DATE: 20160325
